FAERS Safety Report 18261541 (Version 14)
Quarter: 2024Q1

REPORT INFORMATION
  Report Type: Other
  Country: DE (occurrence: None)
  Receive Date: 20200914
  Receipt Date: 20240104
  Transmission Date: 20240410
  Serious: Yes (Other)
  Sender: FDA-Public Use
  Company Number: DE-ROCHE-2490647

PATIENT
  Age: 65 Year
  Sex: Female

DRUGS (15)
  1. OCREVUS [Suspect]
     Active Substance: OCRELIZUMAB
     Indication: Primary progressive multiple sclerosis
     Dosage: THEN 600MG, ONCE IN 181 DAYS
     Route: 042
     Dates: start: 20191128, end: 20200728
  2. OCREVUS [Suspect]
     Active Substance: OCRELIZUMAB
     Route: 042
     Dates: start: 20200115, end: 20200115
  3. OCREVUS [Suspect]
     Active Substance: OCRELIZUMAB
     Route: 042
     Dates: start: 20200129, end: 20200129
  4. OCREVUS [Suspect]
     Active Substance: OCRELIZUMAB
     Route: 042
     Dates: start: 20200722, end: 20200722
  5. OCREVUS [Suspect]
     Active Substance: OCRELIZUMAB
     Route: 042
  6. COMIRNATY (TOZINAMERAN) [Suspect]
     Active Substance: TOZINAMERAN
     Indication: COVID-19 immunisation
     Dosage: SECOND DOSE: /APR/2021
     Route: 065
  7. EFEROX [Concomitant]
     Active Substance: LEVOTHYROXINE SODIUM
     Dosage: 50/75 MICRO GRAMS
  8. EFEROX [Concomitant]
     Active Substance: LEVOTHYROXINE SODIUM
     Dosage: 100 MICROGRAMS / 150 MICROGRAMS (1/2 TABLET)
  9. INDAPAMIDE\PERINDOPRIL ARGININE [Concomitant]
     Active Substance: INDAPAMIDE\PERINDOPRIL ARGININE
     Dosage: 5 MG/1.25 MG (1 TABLET)
  10. SALOFALK [Concomitant]
  11. CHOLECALCIFEROL [Concomitant]
     Active Substance: CHOLECALCIFEROL
  12. METAMIZOLE [Concomitant]
     Active Substance: METAMIZOLE
     Dosage: 1000 TO 4000 MG
  13. CANNABIDIOL\HERBALS [Concomitant]
     Active Substance: CANNABIDIOL\HERBALS
     Dosage: 5%
  14. PROPIONIC ACID [Concomitant]
     Active Substance: PROPIONIC ACID
  15. PREGABALIN [Concomitant]
     Active Substance: PREGABALIN
     Dosage: 1-1-1

REACTIONS (18)
  - Infusion related reaction [Recovered/Resolved]
  - Tendon rupture [Not Recovered/Not Resolved]
  - Nasopharyngitis [Recovered/Resolved]
  - Pain in extremity [Not Recovered/Not Resolved]
  - Muscular weakness [Not Recovered/Not Resolved]
  - Fatigue [Recovered/Resolved]
  - Headache [Recovered/Resolved]
  - Pain in extremity [Recovered/Resolved]
  - Pulpitis dental [Recovered/Resolved]
  - Gait disturbance [Not Recovered/Not Resolved]
  - Muscle spasticity [Recovered/Resolved]
  - Osteoarthritis [Not Recovered/Not Resolved]
  - Oral herpes [Recovered/Resolved]
  - Tendon injury [Not Recovered/Not Resolved]
  - Asthenia [Recovered/Resolved]
  - Myalgia [Recovered/Resolved]
  - Joint stiffness [Recovered/Resolved]
  - Peroneal nerve palsy [Not Recovered/Not Resolved]

NARRATIVE: CASE EVENT DATE: 20191128
